FAERS Safety Report 10215168 (Version 2)
Quarter: 2014Q2

REPORT INFORMATION
  Report Type: Spontaneous
  Country: MY (occurrence: MY)
  Receive Date: 20140603
  Receipt Date: 20140604
  Transmission Date: 20141212
  Serious: Yes (Other)
  Sender: FDA-Public Use
  Company Number: ALCN2014MY003203

PATIENT
  Age: 67 Day
  Sex: Male
  Weight: 2.13 kg

DRUGS (1)
  1. CYCLOMYDRIL [Suspect]
     Dosage: 1 GTT, ONCE/SINGLE
     Dates: start: 20130110, end: 20130110

REACTIONS (2)
  - Apnoea [Recovered/Resolved]
  - Grunting [Recovered/Resolved]
